FAERS Safety Report 9619797 (Version 1)
Quarter: 2013Q4

REPORT INFORMATION
  Report Type: Spontaneous
  Country: BR (occurrence: BR)
  Receive Date: 20131014
  Receipt Date: 20131014
  Transmission Date: 20140711
  Serious: Yes (Other)
  Sender: FDA-Public Use
  Company Number: BR-PFIZER INC-2013292333

PATIENT
  Age: 44 Year
  Sex: Female

DRUGS (2)
  1. LYRICA [Suspect]
     Indication: FIBROMYALGIA
     Dosage: 75 MG, UNSPECIFIED FREQUENCY
     Dates: start: 20131010
  2. CERAZETTE [Concomitant]

REACTIONS (2)
  - Vaginal haemorrhage [Unknown]
  - Abdominal pain [Unknown]
